FAERS Safety Report 9687892 (Version 1)
Quarter: 2013Q4

REPORT INFORMATION
  Report Type: Spontaneous
  Country: US (occurrence: None)
  Receive Date: 20131113
  Receipt Date: 20131113
  Transmission Date: 20140711
  Serious: No
  Sender: FDA-Public Use
  Company Number: None

PATIENT
  Sex: 0
  Weight: 90.7 kg

DRUGS (2)
  1. HEPARIN [Suspect]
     Indication: ANEURYSM REPAIR
     Dosage: 30,0000 U
     Dates: start: 20131014
  2. ENOXAPARIN [Suspect]
     Indication: THROMBOSIS PROPHYLAXIS
     Dates: start: 20131017, end: 20131022

REACTIONS (6)
  - Platelet count decreased [None]
  - Heparin-induced thrombocytopenia test positive [None]
  - Heparin-induced thrombocytopenia [None]
  - Jugular vein thrombosis [None]
  - Axillary vein thrombosis [None]
  - Post procedural complication [None]
